FAERS Safety Report 8472232-7 (Version None)
Quarter: 2012Q2

REPORT INFORMATION
  Report Type: 
  Country: None (occurrence: None)
  Receive Date: 20120627
  Receipt Date: 20120618
  Transmission Date: 20120825
  Serious: Yes (Other)
  Sender: FDA-Public Use
  Company Number: US-ASTRAZENECA-2012SE40969

PATIENT
  Age: 52 Year
  Sex: Female

DRUGS (3)
  1. SYMBICORT [Suspect]
     Dosage: FREQUENCY UNKNOWN
     Route: 055
  2. SEROQUEL [Suspect]
     Route: 048
  3. NEXIUM [Suspect]
     Route: 048

REACTIONS (8)
  - DECREASED IMMUNE RESPONSIVENESS [None]
  - DYSPNOEA [None]
  - MIGRAINE [None]
  - INTERVERTEBRAL DISC PROTRUSION [None]
  - THROMBOSIS [None]
  - HIATUS HERNIA [None]
  - APHAGIA [None]
  - LOSS OF CONSCIOUSNESS [None]
